FAERS Safety Report 16957240 (Version 1)
Quarter: 2019Q4

REPORT INFORMATION
  Report Type: Spontaneous
  Country: US (occurrence: US)
  Receive Date: 20190905
  Receipt Date: 20190905
  Transmission Date: 20200122
  Serious: No
  Sender: FDA-Public Use
  Company Number: None

PATIENT
  Age: 88 Year
  Sex: Male

DRUGS (1)
  1. ABIRATERONE TAB [Suspect]
     Active Substance: ABIRATERONE
     Route: 048
     Dates: start: 20190621

REACTIONS (1)
  - Fall [None]

NARRATIVE: CASE EVENT DATE: 20190904
